FAERS Safety Report 8106252 (Version 4)
Quarter: 2018Q1

REPORT INFORMATION
  Report Type: Spontaneous
  Country: JP (occurrence: JP)
  Receive Date: 20110825
  Receipt Date: 20180223
  Transmission Date: 20180509
  Serious: Yes (Hospitalization)
  Sender: FDA-Public Use
  Company Number: JP-ROCHE-798262

PATIENT
  Age: 64 Year
  Sex: Male
  Weight: 71 kg

DRUGS (16)
  1. OPSO [Suspect]
     Active Substance: MORPHINE HYDROCHLORIDE
     Indication: PRODUCT USED FOR UNKNOWN INDICATION
     Dosage: A DOSE
     Route: 048
  2. ALOXI [Concomitant]
     Active Substance: PALONOSETRON HYDROCHLORIDE
     Dosage: DOSE: 0.75
     Route: 042
     Dates: start: 20110801, end: 20110801
  3. AVASTIN [Suspect]
     Active Substance: BEVACIZUMAB
     Indication: LUNG ADENOCARCINOMA
     Route: 041
     Dates: start: 20110801, end: 20110801
  4. FENTOS (JAPAN) [Suspect]
     Active Substance: FENTANYL
     Indication: CANCER PAIN
     Route: 062
  5. DECADRON (DEXAMETHASONE SODIUM PHOSPHATE) [Concomitant]
     Active Substance: DEXAMETHASONE SODIUM PHOSPHATE
  6. CEPHADOL [Concomitant]
     Active Substance: DIPHENIDOL HYDROCHLORIDE
     Indication: PROPHYLAXIS
     Dosage: DOSE: 25
     Route: 048
  7. AVAPRO [Concomitant]
     Active Substance: IRBESARTAN
  8. CARBOPLATIN. [Suspect]
     Active Substance: CARBOPLATIN
     Indication: LUNG ADENOCARCINOMA
     Route: 041
     Dates: start: 20110801, end: 20110801
  9. OXINORM (JAPAN) [Suspect]
     Active Substance: OXYCODONE HYDROCHLORIDE
     Indication: PRODUCT USED FOR UNKNOWN INDICATION
     Dosage: A DOSE
     Route: 048
  10. TERNELIN [Concomitant]
     Active Substance: TIZANIDINE
     Indication: PROPHYLAXIS
     Dosage: DOSE: 1
     Route: 048
  11. MORPHINE HYDROCHLORIDE [Concomitant]
     Active Substance: MORPHINE HYDROCHLORIDE
  12. ALIMTA [Suspect]
     Active Substance: PEMETREXED DISODIUM
     Indication: LUNG ADENOCARCINOMA
     Dosage: DRUG:ALIMTA(PEMETREXED SODIUM HYDRATE); DOSAGE IS UNCERTAIN
     Route: 041
     Dates: start: 20110801, end: 20110801
  13. DECADRON [Suspect]
     Active Substance: DEXAMETHASONE
     Indication: PRODUCT USED FOR UNKNOWN INDICATION
     Route: 042
     Dates: start: 20110801, end: 20110801
  14. OMEPRAL [Concomitant]
     Active Substance: OMEPRAZOLE
     Indication: PROPHYLAXIS
     Dosage: DOSE: 20
     Route: 048
     Dates: start: 20110727
  15. OXYCONTIN [Suspect]
     Active Substance: OXYCODONE HYDROCHLORIDE
     Indication: PRODUCT USED FOR UNKNOWN INDICATION
     Dosage: DOSAGE IS UNCERTAIN.
     Route: 065
  16. FENTANYL CITRATE. [Concomitant]
     Active Substance: FENTANYL CITRATE

REACTIONS (4)
  - Cholecystitis acute [Recovered/Resolved]
  - Venous thrombosis limb [Recovered/Resolved]
  - Septic shock [Recovered/Resolved]
  - Cholelithiasis [Unknown]

NARRATIVE: CASE EVENT DATE: 20110811
